FAERS Safety Report 6751429-8 (Version None)
Quarter: 2010Q2

REPORT INFORMATION
  Report Type: 
  Country: None (occurrence: None)
  Receive Date: 20100602
  Receipt Date: 20100526
  Transmission Date: 20101027
  Serious: Yes (Other)
  Sender: FDA-Public Use
  Company Number: JP-ROCHE-632160

PATIENT
  Sex: Female

DRUGS (4)
  1. TAMIFLU [Suspect]
     Indication: INFLUENZA
     Route: 048
     Dates: start: 20051226, end: 20051226
  2. TAMIFLU [Suspect]
     Route: 048
     Dates: start: 20051227, end: 20051230
  3. TAMIFLU [Suspect]
     Route: 048
     Dates: start: 20051231, end: 20051231
  4. UNSPECIFIED DRUG [Concomitant]
     Dosage: DRUG NAME: AGENTS USED FOR COMMON COLD FORM: PERORAL AGENT.
     Route: 048
     Dates: start: 20051226, end: 20051226

REACTIONS (1)
  - RETINAL ARTERY OCCLUSION [None]
